FAERS Safety Report 13513362 (Version 1)
Quarter: 2017Q2

REPORT INFORMATION
  Report Type: Spontaneous
  Country: US (occurrence: US)
  Receive Date: 20170504
  Receipt Date: 20170504
  Transmission Date: 20170830
  Serious: Yes (Hospitalization)
  Sender: FDA-Public Use
  Company Number: None

PATIENT
  Age: 65 Year
  Sex: Male
  Weight: 103.9 kg

DRUGS (13)
  1. HUMALOG [Concomitant]
     Active Substance: INSULIN LISPRO
  2. NEURONTIN [Concomitant]
     Active Substance: GABAPENTIN
  3. PROPOFOL. [Suspect]
     Active Substance: PROPOFOL
  4. LEVEMIR [Concomitant]
     Active Substance: INSULIN DETEMIR
  5. MIDAZOLAM 2MG IV [Suspect]
     Active Substance: MIDAZOLAM HYDROCHLORIDE
     Indication: SEDATIVE THERAPY
     Dosage: RECENT
     Route: 042
  6. SUCCINYLCHOLINE 100MG [Suspect]
     Active Substance: SUCCINYLCHOLINE
  7. NORVASC [Concomitant]
     Active Substance: AMLODIPINE BESYLATE
  8. ECOTRIN [Concomitant]
     Active Substance: ASPIRIN
  9. FENTANYL. [Suspect]
     Active Substance: FENTANYL
     Indication: SEDATIVE THERAPY
     Dosage: RECENT
     Route: 042
  10. LIPITOR [Concomitant]
     Active Substance: ATORVASTATIN CALCIUM
  11. PLAVIX [Concomitant]
     Active Substance: CLOPIDOGREL BISULFATE
  12. VECURONIUM 6MG [Suspect]
     Active Substance: VECURONIUM BROMIDE
  13. DEMAD [Concomitant]

REACTIONS (3)
  - Hypotension [None]
  - Cardiac arrest [None]
  - Sedation [None]

NARRATIVE: CASE EVENT DATE: 20161205
